FAERS Safety Report 11879914 (Version 1)
Quarter: 2015Q4

REPORT INFORMATION
  Report Type: Spontaneous
  Country: US (occurrence: US)
  Receive Date: 20151230
  Receipt Date: 20151230
  Transmission Date: 20160305
  Serious: Yes (Death)
  Sender: FDA-Public Use
  Company Number: US-ASTELLAS-2015US048791

PATIENT
  Age: 62 Year
  Sex: Male

DRUGS (1)
  1. TARCEVA [Suspect]
     Active Substance: ERLOTINIB HYDROCHLORIDE
     Indication: METASTATIC LYMPHOMA
     Route: 048
     Dates: start: 20150415

REACTIONS (1)
  - Death [Fatal]

NARRATIVE: CASE EVENT DATE: 20151204
